FAERS Safety Report 24403270 (Version 1)
Quarter: 2024Q4

REPORT INFORMATION
  Report Type: Report from Study
  Country: IT (occurrence: IT)
  Receive Date: 20241007
  Receipt Date: 20241007
  Transmission Date: 20250115
  Serious: No
  Sender: ROCHE
  Company Number: IT-ROCHE-2433181

PATIENT
  Age: 63 Year
  Sex: Female

DRUGS (2)
  1. OBINUTUZUMAB [Suspect]
     Active Substance: OBINUTUZUMAB
     Indication: Follicular lymphoma
     Dosage: 1000 MILLIGRAM (MG) ON DAY 1, 8, 15 OF CYCLE 1 AN DAY 1 OF CYCLES 2-6 OR 2-8 AND THEN 1000 MG IV EVE
     Route: 042
     Dates: start: 20190703
  2. OBINUTUZUMAB [Suspect]
     Active Substance: OBINUTUZUMAB
     Indication: Chronic lymphocytic leukaemia

REACTIONS (8)
  - Neuropathy peripheral [Recovered/Resolved]
  - Cough [Recovered/Resolved]
  - Epistaxis [Recovered/Resolved]
  - Pain [Not Recovered/Not Resolved]
  - Dermal cyst [Recovered/Resolved]
  - Pain in extremity [Recovered/Resolved]
  - COVID-19 [Recovered/Resolved]
  - Off label use [Unknown]

NARRATIVE: CASE EVENT DATE: 20190905
